FAERS Safety Report 10026916 (Version 2)
Quarter: 2014Q2

REPORT INFORMATION
  Report Type: Report from Study
  Country: US (occurrence: US)
  Receive Date: 20140321
  Receipt Date: 20140411
  Transmission Date: 20141212
  Serious: Yes (Hospitalization)
  Sender: FDA-Public Use
  Company Number: US-JNJFOC-20140310156

PATIENT
  Age: 19 Year
  Sex: Male
  Weight: 58.9 kg

DRUGS (2)
  1. REMICADE [Suspect]
     Indication: INFLAMMATORY BOWEL DISEASE
     Route: 042
     Dates: start: 20101001
  2. LIALDA [Concomitant]
     Route: 065

REACTIONS (1)
  - Intestinal obstruction [Not Recovered/Not Resolved]
